FAERS Safety Report 18043305 (Version 2)
Quarter: 2020Q3

REPORT INFORMATION
  Report Type: Spontaneous
  Country: US (occurrence: US)
  Receive Date: 20200720
  Receipt Date: 20200831
  Transmission Date: 20201103
  Serious: No
  Sender: FDA-Public Use
  Company Number: US-JNJFOC-20200724319

PATIENT
  Age: 75 Year
  Sex: Female

DRUGS (2)
  1. STELARA [Suspect]
     Active Substance: USTEKINUMAB
     Indication: PRODUCT USED FOR UNKNOWN INDICATION
     Route: 042
     Dates: start: 20200715
  2. STELARA [Suspect]
     Active Substance: USTEKINUMAB

REACTIONS (7)
  - Swollen tongue [Unknown]
  - Diarrhoea [Unknown]
  - Dysuria [Unknown]
  - Pharyngeal swelling [Unknown]
  - Nausea [Unknown]
  - Headache [Unknown]
  - Wheezing [Unknown]

NARRATIVE: CASE EVENT DATE: 202007
